FAERS Safety Report 13390441 (Version 1)
Quarter: 2017Q1

REPORT INFORMATION
  Report Type: Spontaneous
  Country: IT (occurrence: IT)
  Receive Date: 20170331
  Receipt Date: 20170331
  Transmission Date: 20170429
  Serious: Yes (Other)
  Sender: FDA-Public Use
  Company Number: IT-JNJFOC-20170322774

PATIENT
  Age: 7 Decade
  Sex: Male

DRUGS (2)
  1. ACTIFED NASALE 15ML [Suspect]
     Active Substance: OXYMETAZOLINE HYDROCHLORIDE
     Indication: NASAL CONGESTION
     Dosage: 1 SPRAYS FOR NOSTRIL ONCE A DAY EVERY NIGHT
     Route: 045
     Dates: start: 2011
  2. ACTIFED NASALE 15ML [Suspect]
     Active Substance: OXYMETAZOLINE HYDROCHLORIDE
     Indication: NASAL CONGESTION
     Dosage: 1 SPRAYS FOR NOSTRIL ONCE A DAY EVERY NIGHT
     Route: 045
     Dates: end: 2016

REACTIONS (3)
  - Drug dependence [Unknown]
  - Inappropriate schedule of drug administration [Unknown]
  - Intentional product use issue [Unknown]

NARRATIVE: CASE EVENT DATE: 2011
